FAERS Safety Report 9460538 (Version 1)
Quarter: 2013Q3

REPORT INFORMATION
  Report Type: Spontaneous
  Country: FR (occurrence: FR)
  Receive Date: 20130815
  Receipt Date: 20130815
  Transmission Date: 20140515
  Serious: Yes (Hospitalization)
  Sender: FDA-Public Use
  Company Number: FR-WATSON-2013-14620

PATIENT
  Age: 81 Year
  Sex: Female

DRUGS (6)
  1. GABAPENTIN (UNKNOWN) [Suspect]
     Indication: VIITH NERVE PARALYSIS
     Dosage: 3 DF 1 INTERVAL 1 DAY
     Route: 048
     Dates: end: 20130606
  2. VALACICLOVIR HYDROCHLORIDE [Suspect]
     Indication: VIITH NERVE PARALYSIS
     Dosage: 500 MG, UNK
     Route: 048
     Dates: start: 20130501, end: 20130605
  3. CEFTRIAXONE (UNKNOWN) [Suspect]
     Indication: LUNG INFECTION
     Dosage: UNK
     Route: 065
     Dates: start: 20130526, end: 20130527
  4. PIPERACILLIN SODIUM W/TAZOBACTAM SODIUM [Suspect]
     Indication: PRODUCT USED FOR UNKNOWN INDICATION
     Dosage: UNK
     Route: 042
     Dates: end: 20130604
  5. OFLOXACINE (UNKNOWN) [Suspect]
     Indication: LUNG INFECTION
     Dosage: UNK
     Route: 042
     Dates: start: 20130526, end: 20130604
  6. TRAMADOL HYDROCHLORIDE (UNKNOWN) [Suspect]
     Indication: PRODUCT USED FOR UNKNOWN INDICATION
     Dosage: 100 MG, DAILY
     Route: 048
     Dates: start: 20130601, end: 20130606

REACTIONS (3)
  - Encephalopathy [Recovered/Resolved]
  - Coma [Recovered/Resolved]
  - Myoclonus [Recovered/Resolved]
